FAERS Safety Report 20335827 (Version 1)
Quarter: 2022Q1

REPORT INFORMATION
  Report Type: Spontaneous
  Country: FR (occurrence: None)
  Receive Date: 20220114
  Receipt Date: 20220114
  Transmission Date: 20220423
  Serious: Yes (Hospitalization)
  Sender: FDA-Public Use
  Company Number: None

PATIENT
  Age: 49 Year
  Sex: Male
  Weight: 97.8 kg

DRUGS (5)
  1. ZELBORAF [Suspect]
     Active Substance: VEMURAFENIB
     Indication: Nodular melanoma
     Route: 048
     Dates: start: 20181114, end: 201912
  2. COTELLIC [Suspect]
     Active Substance: COBIMETINIB
     Indication: Nodular melanoma
     Route: 048
     Dates: start: 20181114, end: 201912
  3. VOGALENE [Concomitant]
     Active Substance: METOPIMAZINE
     Route: 048
  4. IMOVANE [Concomitant]
     Active Substance: ZOPICLONE
     Route: 048
  5. DAFALGAN CODEINE [Concomitant]
     Active Substance: ACETAMINOPHEN\CODEINE PHOSPHATE
     Route: 048

REACTIONS (1)
  - Leukoencephalopathy [Not Recovered/Not Resolved]

NARRATIVE: CASE EVENT DATE: 20190212
